FAERS Safety Report 4540224-6 (Version None)
Quarter: 2004Q4

REPORT INFORMATION
  Report Type: 
  Country: None (occurrence: None)
  Receive Date: 20041223
  Receipt Date: 20041207
  Transmission Date: 20050328
  Serious: Yes (Hospitalization)
  Sender: FDA-Public Use
  Company Number: HQWYE851708DEC04

PATIENT
  Age: 35 Year
  Sex: Male

DRUGS (1)
  1. ADVIL [Suspect]
     Indication: PAIN
     Dosage: 800 MG THREE TIMES DAILY, ORAL
     Route: 048
     Dates: start: 20030201, end: 20031223

REACTIONS (10)
  - ANAEMIA [None]
  - DISEASE RECURRENCE [None]
  - DIZZINESS [None]
  - GASTROINTESTINAL HAEMORRHAGE [None]
  - MALIGNANT NEOPLASM PROGRESSION [None]
  - MELAENA [None]
  - METASTASES TO GASTROINTESTINAL TRACT [None]
  - OVERDOSE [None]
  - THROMBOSIS [None]
  - VOMITING [None]
